FAERS Safety Report 13939542 (Version 2)
Quarter: 2017Q3

REPORT INFORMATION
  Report Type: Spontaneous
  Country: US (occurrence: US)
  Receive Date: 20170906
  Receipt Date: 20170907
  Transmission Date: 20171127
  Serious: No
  Sender: FDA-Public Use
  Company Number: US-PFIZER INC-2017380913

PATIENT
  Sex: Female

DRUGS (2)
  1. NEOSPORIN [Suspect]
     Active Substance: BACITRACIN ZINC\NEOMYCIN SULFATE\POLYMYXIN B SULFATE
     Indication: DERMATITIS ATOPIC
     Dosage: UNK
     Route: 061
  2. MENTHOL. [Suspect]
     Active Substance: MENTHOL
     Dosage: UNK

REACTIONS (3)
  - Skin burning sensation [Recovering/Resolving]
  - Condition aggravated [Recovering/Resolving]
  - Eczema [Recovering/Resolving]
